FAERS Safety Report 22239245 (Version 1)
Quarter: 2023Q2

REPORT INFORMATION
  Report Type: Spontaneous
  Country: CH (occurrence: CH)
  Receive Date: 20230421
  Receipt Date: 20230421
  Transmission Date: 20230722
  Serious: Yes (Other)
  Sender: FDA-Public Use
  Company Number: CH-JNJFOC-20230416975

PATIENT
  Age: 48 Year
  Sex: Male

DRUGS (2)
  1. DARZALEX [Suspect]
     Active Substance: DARATUMUMAB
     Indication: Angiocentric lymphoma
     Dosage: TOTAL OF 2200 MG
     Route: 041
  2. DARZALEX [Suspect]
     Active Substance: DARATUMUMAB
     Indication: Central nervous system leukaemia

REACTIONS (6)
  - Acute kidney injury [Unknown]
  - Thrombocytopenia [Unknown]
  - Hepatic enzyme increased [Unknown]
  - Off label use [Unknown]
  - General physical health deterioration [Unknown]
  - Pyrexia [Unknown]
